FAERS Safety Report 6444682-1 (Version None)
Quarter: 2009Q4

REPORT INFORMATION
  Report Type: 
  Country: None (occurrence: None)
  Receive Date: 20091116
  Receipt Date: 20091116
  Transmission Date: 20100525
  Serious: Yes (Other)
  Sender: FDA-Public Use
  Company Number: None

PATIENT
  Sex: Female
  Weight: 74.8435 kg

DRUGS (2)
  1. AMOXICILLIN AND CLAVULANATE POTASSIUM [Suspect]
     Indication: NASOPHARYNGITIS
     Dosage: 1 TABLET TWICE DAILY MOUTH 20 TABS
     Route: 048
     Dates: start: 20091103
  2. AMOXICILLIN AND CLAVULANATE POTASSIUM [Suspect]
     Indication: SINUS DISORDER
     Dosage: 1 TABLET TWICE DAILY MOUTH 20 TABS
     Route: 048
     Dates: start: 20091103

REACTIONS (1)
  - TOOTH DISCOLOURATION [None]
